FAERS Safety Report 4998902-0 (Version None)
Quarter: 2006Q2

REPORT INFORMATION
  Report Type: 
  Country: None (occurrence: None)
  Receive Date: 20060510
  Receipt Date: 20060405
  Transmission Date: 20061013
  Serious: Yes (Hospitalization)
  Sender: FDA-Public Use
  Company Number: US-MERCK-0604USA00639

PATIENT
  Age: 63 Year
  Sex: Female
  Weight: 76 kg

DRUGS (15)
  1. VIOXX [Suspect]
     Indication: ARTHRITIS
     Route: 048
     Dates: start: 20020101, end: 20040901
  2. SIMVASTATIN [Concomitant]
     Route: 065
  3. ASPIRIN [Concomitant]
     Route: 065
  4. HYDROCHLOROTHIAZIDE AND TRIAMTERENE [Concomitant]
     Route: 065
  5. VERAPAMIL [Concomitant]
     Route: 065
  6. COMBIVENT [Concomitant]
     Route: 065
  7. COLCHICINE [Concomitant]
     Route: 065
  8. BENADRYL [Concomitant]
     Route: 065
  9. ESTRADIOL [Concomitant]
     Route: 065
  10. ALLEGRA [Concomitant]
     Route: 065
  11. TYLENOL [Concomitant]
     Route: 065
  12. ZOLOFT [Concomitant]
     Route: 065
  13. PRILOSEC [Concomitant]
     Route: 065
  14. IMODIUM [Concomitant]
     Route: 065
  15. NITROSTAT [Concomitant]
     Route: 065

REACTIONS (1)
  - MYOCARDIAL INFARCTION [None]
